FAERS Safety Report 4788836-9 (Version None)
Quarter: 2005Q4

REPORT INFORMATION
  Report Type: 
  Country: None (occurrence: None)
  Receive Date: 20051004
  Receipt Date: 20050921
  Transmission Date: 20060501
  Serious: Yes (Other)
  Sender: FDA-Public Use
  Company Number: 2005094655

PATIENT
  Age: 46 Year
  Sex: Male

DRUGS (6)
  1. CAVERJECT [Suspect]
     Indication: ERECTILE DYSFUNCTION
     Dosage: 10 MCG (10 MCG, 1 IN 1 WK)
     Dates: start: 20050624
  2. DIOVAN ^CIBA-GEIGY^ (VALSARTAN) [Concomitant]
  3. AMLODIPINE [Concomitant]
  4. CLONAZEPAM [Concomitant]
  5. ANTIDEPRESSANTS (ANTIDEPRESANTS) [Concomitant]
  6. CIALIS [Concomitant]

REACTIONS (4)
  - DRUG INEFFECTIVE [None]
  - ERECTION INCREASED [None]
  - PENILE PAIN [None]
  - PENIS DISORDER [None]
